FAERS Safety Report 4746465-7 (Version None)
Quarter: 2005Q3

REPORT INFORMATION
  Report Type: 
  Country: None (occurrence: None)
  Receive Date: 20050815
  Receipt Date: 20050808
  Transmission Date: 20060218
  Serious: Yes (Hospitalization, Other)
  Sender: FDA-Public Use
  Company Number: FR-2005-004454

PATIENT
  Age: 79 Year
  Sex: Female

DRUGS (8)
  1. SOTALOL HCL [Suspect]
     Indication: HYPERTENSION
     Dates: end: 20041130
  2. BISOPROLOL FUMARATE [Suspect]
     Indication: HYPERTENSION
     Dosage: 10 MG
  3. RAMIPRIL [Suspect]
     Dates: end: 20040701
  4. LEVOTHYROXINE SODIUM [Concomitant]
  5. ZYLORIC ^FAES^ [Concomitant]
  6. FOSAMAX [Concomitant]
  7. MEDIATOR (BENFLUOREX HYDROCHLORIDE) [Concomitant]
  8. SERECOR (HYDROQUINIDINE HYDROCHLORIDE) [Concomitant]

REACTIONS (5)
  - BRONCHIOLITIS [None]
  - COUGH [None]
  - RAYNAUD'S PHENOMENON [None]
  - RESTRICTIVE PULMONARY DISEASE [None]
  - SJOGREN'S SYNDROME [None]
